FAERS Safety Report 7385540-8 (Version None)
Quarter: 2011Q1

REPORT INFORMATION
  Report Type: 
  Country: None (occurrence: None)
  Receive Date: 20110331
  Receipt Date: 20110322
  Transmission Date: 20110831
  Serious: Yes (Hospitalization)
  Sender: FDA-Public Use
  Company Number: US-BIOGENIDEC-2011BI007851

PATIENT
  Age: 39 Year
  Sex: Male

DRUGS (2)
  1. AVONEX [Suspect]
     Indication: MULTIPLE SCLEROSIS
     Route: 030
     Dates: start: 20031001, end: 20110201
  2. AVONEX [Suspect]
     Route: 030
     Dates: start: 20110301

REACTIONS (4)
  - GAIT DISTURBANCE [None]
  - THERMOANAESTHESIA [None]
  - COLOUR BLINDNESS ACQUIRED [None]
  - MULTIPLE SCLEROSIS RELAPSE [None]
